FAERS Safety Report 10440994 (Version 1)
Quarter: 2014Q3

REPORT INFORMATION
  Report Type: Spontaneous
  Country: TR (occurrence: TR)
  Receive Date: 20140909
  Receipt Date: 20140909
  Transmission Date: 20150326
  Serious: Yes (Death, Other)
  Sender: FDA-Public Use
  Company Number: TR-CELGENEUS-161-21880-14090733

PATIENT

DRUGS (2)
  1. CYCLOPHOSPHAMIDE. [Concomitant]
     Active Substance: CYCLOPHOSPHAMIDE
     Indication: PLASMA CELL MYELOMA
     Route: 065
  2. REVLIMID [Suspect]
     Active Substance: LENALIDOMIDE
     Indication: PLASMA CELL MYELOMA
     Route: 048

REACTIONS (12)
  - Plasma cell myeloma [Unknown]
  - Diarrhoea [Unknown]
  - Rash [Unknown]
  - Infection [Unknown]
  - Pancytopenia [Unknown]
  - Death [Fatal]
  - Pneumonia [Fatal]
  - Pulmonary embolism [Unknown]
  - Fatigue [Unknown]
  - Headache [Unknown]
  - Renal failure [Fatal]
  - Deep vein thrombosis [Unknown]
